FAERS Safety Report 9536351 (Version 2)
Quarter: 2013Q4

REPORT INFORMATION
  Report Type: Spontaneous
  Country: US (occurrence: US)
  Receive Date: 20130919
  Receipt Date: 20131112
  Transmission Date: 20140711
  Serious: No
  Sender: FDA-Public Use
  Company Number: US-009507513-1309USA008541

PATIENT
  Sex: Female
  Weight: 89.34 kg

DRUGS (1)
  1. GANIRELIX ACETATE INJECTION [Suspect]
     Indication: ANOVULATORY CYCLE
     Dosage: 250 MICROGRAM, QD.TOTAL DAILY DOSE: 250 MCG, FORMULATION : PREFILLED SYRINGE
     Route: 058
     Dates: start: 20130914, end: 20130920

REACTIONS (3)
  - Drug dose omission [Unknown]
  - Product quality issue [Unknown]
  - No adverse event [Unknown]
